FAERS Safety Report 18331131 (Version 2)
Quarter: 2020Q4

REPORT INFORMATION
  Report Type: Spontaneous
  Country: CN (occurrence: CN)
  Receive Date: 20200930
  Receipt Date: 20201016
  Transmission Date: 20210113
  Serious: Yes (Other)
  Sender: FDA-Public Use
  Company Number: CN-GILEAD-2020-0496818

PATIENT
  Sex: Male
  Weight: 3.63 kg

DRUGS (1)
  1. VIREAD [Suspect]
     Active Substance: TENOFOVIR DISOPROXIL FUMARATE
     Indication: HEPATITIS B
     Dosage: 300 MG, QD
     Route: 064

REACTIONS (2)
  - Hepatitis B [Not Recovered/Not Resolved]
  - Foetal exposure during pregnancy [Recovered/Resolved]
